FAERS Safety Report 22273659 (Version 1)
Quarter: 2023Q2

REPORT INFORMATION
  Report Type: Spontaneous
  Country: CN (occurrence: CN)
  Receive Date: 20230502
  Receipt Date: 20230502
  Transmission Date: 20230721
  Serious: Yes (Other)
  Sender: FDA-Public Use
  Company Number: CN-PFIZER INC-PV202300076212

PATIENT
  Age: 53 Year
  Sex: Female
  Weight: 55 kg

DRUGS (4)
  1. IRINOTECAN HYDROCHLORIDE [Suspect]
     Active Substance: IRINOTECAN HYDROCHLORIDE
     Indication: Appendix cancer
     Dosage: 0.2 G, 1X/DAY
     Route: 041
     Dates: start: 20230417, end: 20230417
  2. IRINOTECAN HYDROCHLORIDE [Suspect]
     Active Substance: IRINOTECAN HYDROCHLORIDE
     Indication: Appendix cancer
     Dosage: 0.06 G, 1X/DAY
     Route: 041
     Dates: start: 20230417, end: 20230417
  3. FLUOROURACIL [Suspect]
     Active Substance: FLUOROURACIL
     Indication: Appendix cancer
     Dosage: 3.5 G, 1X/DAY
     Dates: start: 20230417, end: 20230419
  4. CETUXIMAB [Concomitant]
     Active Substance: CETUXIMAB
     Indication: Appendix cancer
     Dosage: 700 MG, 1X/DAY
     Route: 041
     Dates: start: 20230417, end: 20230417

REACTIONS (4)
  - Nausea [Recovering/Resolving]
  - Vomiting [Recovering/Resolving]
  - Malaise [Recovering/Resolving]
  - Discomfort [Recovering/Resolving]

NARRATIVE: CASE EVENT DATE: 20230417
